FAERS Safety Report 4578380-6 (Version None)
Quarter: 2005Q1

REPORT INFORMATION
  Report Type: 
  Country: None (occurrence: None)
  Receive Date: 20050209
  Receipt Date: 20050126
  Transmission Date: 20050727
  Serious: Yes (Hospitalization)
  Sender: FDA-Public Use
  Company Number: US_0502111618

PATIENT
  Age: 80 Year
  Sex: Female

DRUGS (8)
  1. FORTEO [Suspect]
     Indication: OSTEOPOROSIS
     Dosage: 20 UG
     Dates: start: 20040901
  2. TOPROL-XL [Concomitant]
  3. AVALIDE [Concomitant]
  4. PLAVIX [Concomitant]
  5. PLETAL [Concomitant]
  6. CALCIUM GLUCONATE [Concomitant]
  7. MULTI-VITAMINS [Concomitant]
  8. VOLTAREN [Concomitant]

REACTIONS (3)
  - DIVERTICULITIS [None]
  - PHARMACEUTICAL PRODUCT COMPLAINT [None]
  - RECTAL HAEMORRHAGE [None]
